FAERS Safety Report 11793841 (Version 2)
Quarter: 2015Q4

REPORT INFORMATION
  Report Type: Spontaneous
  Country: US (occurrence: None)
  Receive Date: 20151201
  Receipt Date: 20151201
  Transmission Date: 20160305
  Serious: Yes (Other)
  Sender: FDA-Public Use
  Company Number: None

PATIENT
  Age: 57 Year
  Sex: Female
  Weight: 87.09 kg

DRUGS (20)
  1. ASTILIN [Concomitant]
  2. CYMBALTA [Concomitant]
     Active Substance: DULOXETINE HYDROCHLORIDE
  3. COQ10 [Concomitant]
     Active Substance: UBIDECARENONE
  4. VITAMIN D [Concomitant]
     Active Substance: CHOLECALCIFEROL
  5. COMPLETE OMEGA (3,6,+ 9) [Concomitant]
  6. DHEA [Concomitant]
     Active Substance: PRASTERONE
  7. GILENYA [Suspect]
     Active Substance: FINGOLIMOD HYDROCHLORIDE
     Indication: MULTIPLE SCLEROSIS
     Dosage: 1 CAPSULE ONCE DAILY TAKEN BY MOUTH
     Route: 048
     Dates: start: 20151114, end: 20151125
  8. LORAZEPAM. [Concomitant]
     Active Substance: LORAZEPAM
  9. TRAMADOL. [Concomitant]
     Active Substance: TRAMADOL
  10. ALBUTEROL. [Concomitant]
     Active Substance: ALBUTEROL
  11. MAGNESIUM [Concomitant]
     Active Substance: MAGNESIUM
  12. BIOIDENTICAL HORMONES [Concomitant]
  13. LITHIUM. [Concomitant]
     Active Substance: LITHIUM
  14. PROVIGIL [Concomitant]
     Active Substance: MODAFINIL
  15. LAMICTAL [Concomitant]
     Active Substance: LAMOTRIGINE
  16. LEVOYL [Concomitant]
  17. TRAZODONE [Concomitant]
     Active Substance: TRAZODONE HYDROCHLORIDE
  18. PATANOL [Concomitant]
     Active Substance: OLOPATADINE HYDROCHLORIDE
  19. COMPLETE MULTI [Concomitant]
  20. CURCUMIN [Concomitant]
     Active Substance: CURCUMIN

REACTIONS (4)
  - Speech disorder [None]
  - Self injurious behaviour [None]
  - Depression [None]
  - Cognitive disorder [None]

NARRATIVE: CASE EVENT DATE: 20151114
